FAERS Safety Report 12331471 (Version 1)
Quarter: 2016Q2

REPORT INFORMATION
  Report Type: Spontaneous
  Country: US (occurrence: US)
  Receive Date: 20160504
  Receipt Date: 20160504
  Transmission Date: 20160815
  Serious: No
  Sender: FDA-Public Use
  Company Number: US-GLAXOSMITHKLINE-US2016GSK056353

PATIENT
  Sex: Female

DRUGS (1)
  1. CARVEDILOL PHOSPHATE. [Suspect]
     Active Substance: CARVEDILOL PHOSPHATE
     Indication: CARDIAC FAILURE CONGESTIVE
     Dosage: UNK UNK, U

REACTIONS (3)
  - Inability to afford medication [Unknown]
  - Product substitution issue [Unknown]
  - Drug ineffective [Unknown]
